FAERS Safety Report 25351596 (Version 1)
Quarter: 2025Q2

REPORT INFORMATION
  Report Type: Spontaneous
  Country: IT (occurrence: IT)
  Receive Date: 20250523
  Receipt Date: 20250523
  Transmission Date: 20250716
  Serious: Yes (Other)
  Sender: SANDOZ
  Company Number: None

PATIENT
  Age: 24 Year
  Sex: Female
  Weight: 47 kg

DRUGS (3)
  1. FILGRASTIM [Suspect]
     Active Substance: FILGRASTIM
     Indication: Colony stimulating factor therapy
     Dosage: IN PROFILASSI ESEGUIVA ZARZIO 30 MU DAL 04 /04 AL 09/04/2025 COMPRESO (6 FIALE TOTALI)
     Route: 058
     Dates: start: 20250409, end: 20250414
  2. EPIRUBICIN [Concomitant]
     Active Substance: EPIRUBICIN
     Indication: Adjuvant therapy
     Route: 042
     Dates: start: 20250331, end: 20250401
  3. IFOSFAMIDE [Concomitant]
     Active Substance: IFOSFAMIDE
     Indication: Adjuvant therapy
     Route: 042
     Dates: start: 20250331, end: 20250402

REACTIONS (2)
  - Neutropenia [Recovered/Resolved]
  - Pyrexia [Recovered/Resolved]

NARRATIVE: CASE EVENT DATE: 20250409
